FAERS Safety Report 13498783 (Version 1)
Quarter: 2017Q2

REPORT INFORMATION
  Report Type: Spontaneous
  Country: CH (occurrence: CH)
  Receive Date: 20170501
  Receipt Date: 20170501
  Transmission Date: 20170830
  Serious: Yes (Death, Hospitalization)
  Sender: FDA-Public Use
  Company Number: CH-TEVA-762211ISR

PATIENT
  Age: 65 Year
  Sex: Male
  Weight: 100 kg

DRUGS (40)
  1. RIFADINE [Suspect]
     Active Substance: RIFAMPIN
     Route: 048
     Dates: start: 20170314, end: 20170321
  2. ZANIDIP [Concomitant]
     Active Substance: LERCANIDIPINE HYDROCHLORIDE
     Indication: HYPERTENSION
     Route: 048
     Dates: end: 20170217
  3. ULTIVA [Concomitant]
     Active Substance: REMIFENTANIL HYDROCHLORIDE
     Route: 065
  4. NOVALGIN INJECTION SOLUTION [Concomitant]
     Route: 065
  5. METOLAZON [Concomitant]
     Active Substance: METOLAZONE
     Route: 065
     Dates: start: 20170323
  6. RENAGEL FILM TABLETS [Concomitant]
     Route: 065
     Dates: start: 20170322
  7. BECOZYME [Concomitant]
     Active Substance: VITAMINS
     Route: 065
  8. PANTOZOL [Suspect]
     Active Substance: PANTOPRAZOLE SODIUM
     Route: 041
     Dates: start: 20170227
  9. LISINOPRIL AND HYDROCHLOROTHIAZIDE [Concomitant]
     Active Substance: HYDROCHLOROTHIAZIDE\LISINOPRIL
     Indication: HYPERTENSION
     Route: 048
     Dates: end: 20170217
  10. ATROVENT SOLUTION FOR INHALATION [Concomitant]
     Route: 065
  11. XYZAL FILM COATED TABLETS WITH BREAK NOTCH [Concomitant]
     Route: 065
     Dates: start: 20170319
  12. RIFAMPICIN [Suspect]
     Active Substance: RIFAMPIN
     Route: 041
     Dates: start: 20170306, end: 20170313
  13. LASIX [Suspect]
     Active Substance: FUROSEMIDE
     Route: 065
  14. VENTOLIN 0,5 %, SOLUTION FOR INHALATION [Concomitant]
     Route: 065
  15. ATORVASTATIN PFIZER [Concomitant]
     Active Substance: ATORVASTATIN
     Route: 065
  16. HEPARIN [Concomitant]
     Active Substance: HEPARIN SODIUM
     Route: 065
     Dates: start: 20170217
  17. FENTANYL SYNTHETIC [Concomitant]
     Route: 065
  18. MAGNESIA S PELLEGRINO [Concomitant]
     Route: 065
  19. MIDAZOLAM [Concomitant]
     Active Substance: MIDAZOLAM HYDROCHLORIDE
     Route: 065
  20. SPASMO-URGENIN NEO COATED TABLETS [Concomitant]
     Route: 065
  21. ALUCOL [Concomitant]
     Active Substance: ALUMINUM HYDROXIDE\MAGNESIUM HYDROXIDE
     Route: 065
  22. DUROGESIC MATRIX 100 UG/HOUR TRANSDERMAL PATCH [Concomitant]
     Route: 065
  23. VANCOCIN [Suspect]
     Active Substance: VANCOMYCIN HYDROCHLORIDE
     Route: 041
     Dates: start: 20170227, end: 20170320
  24. RIFADINE [Suspect]
     Active Substance: RIFAMPIN
     Route: 048
     Dates: start: 20170227, end: 20170306
  25. NEBIVOLOL SANDOZ [Suspect]
     Active Substance: NEBIVOLOL
     Indication: TACHYCARDIA
     Route: 048
  26. BENERVA 300 MG TABLETS [Concomitant]
     Route: 065
  27. NORADRENALIN [Concomitant]
     Active Substance: NOREPINEPHRINE\NOREPINEPHRINE BITARTRATE
     Route: 065
  28. DOBUTREX [Concomitant]
     Active Substance: DOBUTAMINE HYDROCHLORIDE
     Route: 065
  29. COROTROP SOLUTION INJECTABLE [Concomitant]
     Route: 065
  30. TRACRIUM INJECTION SOLUTION [Concomitant]
     Route: 065
  31. CALCIPARINE [Concomitant]
     Active Substance: HEPARIN CALCIUM
     Route: 065
     Dates: start: 20170317, end: 20170328
  32. METAMIZOL [Concomitant]
     Active Substance: METAMIZOLE SODIUM
     Route: 065
  33. CEFEPIME [Concomitant]
     Active Substance: CEFEPIME HYDROCHLORIDE
     Route: 065
     Dates: start: 20170221
  34. CUBICIN [Concomitant]
     Active Substance: DAPTOMYCIN
     Route: 065
     Dates: start: 20170321
  35. TRANSIPEG FORTE POWDER [Concomitant]
     Active Substance: POTASSIUM CHLORIDE\SODIUM BICARBONATE\SODIUM CHLORIDE\SODIUM SULFATE ANHYDROUS
     Route: 065
  36. DUROGESIC MATRIX 50 UG/HOUR TRANSDERMAL PATCH [Concomitant]
     Route: 065
     Dates: start: 20170321, end: 20170322
  37. ESMERON [Concomitant]
     Active Substance: ROCURONIUM BROMIDE
     Route: 065
  38. AMLODIPINE [Suspect]
     Active Substance: AMLODIPINE BESYLATE
     Route: 065
     Dates: start: 20170220, end: 20170320
  39. QUETIAPIN SANDOZ [Suspect]
     Active Substance: QUETIAPINE
     Route: 048
     Dates: start: 20170220, end: 20170401
  40. NEURONTIN 300 MG CAPSULES [Concomitant]
     Route: 065

REACTIONS (1)
  - Drug reaction with eosinophilia and systemic symptoms [Fatal]

NARRATIVE: CASE EVENT DATE: 20170319
